FAERS Safety Report 4642336-5 (Version None)
Quarter: 2005Q2

REPORT INFORMATION
  Report Type: 
  Country: None (occurrence: None)
  Receive Date: 20050421
  Receipt Date: 20050421
  Transmission Date: 20051028
  Serious: No
  Sender: FDA-Public Use
  Company Number: None

PATIENT
  Sex: Male
  Weight: 75.4 kg

DRUGS (1)
  1. INFUVITE ADULT [Suspect]
     Dosage: OVER 20 HOUR
     Dates: start: 20050313, end: 20050313

REACTIONS (2)
  - ANGIONEUROTIC OEDEMA [None]
  - COUGH [None]
